FAERS Safety Report 5342449-9 (Version None)
Quarter: 2007Q2

REPORT INFORMATION
  Report Type: 
  Country: None (occurrence: None)
  Receive Date: 20070601
  Receipt Date: 20070521
  Transmission Date: 20071010
  Serious: Yes (Other)
  Sender: FDA-Public Use
  Company Number: BR-PFIZER INC-2007012104

PATIENT
  Sex: Female

DRUGS (3)
  1. XALATAN [Suspect]
     Indication: GLAUCOMA
     Dosage: DAILY DOSE:2DROP
     Route: 047
  2. TANAKAN [Concomitant]
     Dosage: DAILY DOSE:80MG
     Route: 048
  3. TRUSOPT [Concomitant]
     Dosage: TEXT:DAILY
     Route: 047
     Dates: start: 20050101

REACTIONS (3)
  - EYE INFECTION [None]
  - INTENTIONAL DRUG MISUSE [None]
  - INTRAOCULAR PRESSURE INCREASED [None]
